FAERS Safety Report 21738647 (Version 2)
Quarter: 2022Q4

REPORT INFORMATION
  Report Type: Report from Study
  Country: BR (occurrence: BR)
  Receive Date: 20221216
  Receipt Date: 20221219
  Transmission Date: 20230112
  Serious: Yes (Hospitalization)
  Sender: FDA-Public Use
  Company Number: BR-JNJFOC-20200220526

PATIENT
  Age: 3 Decade
  Sex: Male

DRUGS (5)
  1. INVEGA SUSTENNA [Suspect]
     Active Substance: PALIPERIDONE PALMITATE
     Indication: Schizoaffective disorder
     Route: 030
     Dates: start: 20190914
  2. INVEGA SUSTENNA [Suspect]
     Active Substance: PALIPERIDONE PALMITATE
     Indication: Schizophrenia
     Route: 030
     Dates: start: 2021
  3. INVEGA SUSTENNA [Suspect]
     Active Substance: PALIPERIDONE PALMITATE
     Route: 030
     Dates: start: 202210
  4. OLANZAPINE [Concomitant]
     Active Substance: OLANZAPINE
  5. FLUOXETINE HYDROCHLORIDE [Concomitant]
     Active Substance: FLUOXETINE HYDROCHLORIDE

REACTIONS (8)
  - Fall [Unknown]
  - Weight decreased [Unknown]
  - Foot fracture [Unknown]
  - Muscle atrophy [Unknown]
  - Weight increased [Unknown]
  - Depression [Recovering/Resolving]
  - Persecutory delusion [Recovering/Resolving]
  - Vasodilatation [Unknown]

NARRATIVE: CASE EVENT DATE: 20210101
